FAERS Safety Report 11916354 (Version 2)
Quarter: 2016Q1

REPORT INFORMATION
  Report Type: Spontaneous
  Country: US (occurrence: US)
  Receive Date: 20160114
  Receipt Date: 20160204
  Transmission Date: 20160526
  Serious: Yes (Other)
  Sender: FDA-Public Use
  Company Number: US-BAYER-2016-007582

PATIENT
  Age: 62 Year
  Sex: Female
  Weight: 122.45 kg

DRUGS (3)
  1. TYLENOL [DIPHENHYDRAMINE HYDROCHLORIDE,PARACETAMOL] [Concomitant]
     Active Substance: ACETAMINOPHEN\DIPHENHYDRAMINE HYDROCHLORIDE
  2. BAYER GENUINE ASPIRIN [Suspect]
     Active Substance: ASPIRIN
  3. ALEVE [Suspect]
     Active Substance: NAPROXEN SODIUM
     Dosage: UNK, PRN

REACTIONS (3)
  - Renal failure [Not Recovered/Not Resolved]
  - Drug hypersensitivity [None]
  - Product use issue [None]

NARRATIVE: CASE EVENT DATE: 20150614
